FAERS Safety Report 15703998 (Version 1)
Quarter: 2018Q4

REPORT INFORMATION
  Report Type: Spontaneous
  Country: US (occurrence: US)
  Receive Date: 20181210
  Receipt Date: 20181210
  Transmission Date: 20190205
  Serious: Yes (Disabling)
  Sender: FDA-Public Use
  Company Number: None

PATIENT
  Age: 31 Year
  Sex: Female
  Weight: 62.14 kg

DRUGS (1)
  1. MIRENA [Suspect]
     Active Substance: LEVONORGESTREL

REACTIONS (13)
  - Back pain [None]
  - Apathy [None]
  - Antinuclear antibody positive [None]
  - Autoimmune thyroiditis [None]
  - Pelvic pain [None]
  - Fatigue [None]
  - Migraine [None]
  - Asthenia [None]
  - Myalgia [None]
  - Loss of personal independence in daily activities [None]
  - Scleroderma [None]
  - Feeling cold [None]
  - Coordination abnormal [None]

NARRATIVE: CASE EVENT DATE: 20171205
